FAERS Safety Report 7095450 (Version 1)
Quarter: 2020Q3

REPORT INFORMATION
  Report Type: Report from Study
  Country: US (occurrence: US)
  Receive Date: 20090825
  Receipt Date: 20090825
  Transmission Date: 20201104
  Serious: Yes (Death, Other)
  Sender: FDA-Public Use
  Company Number: US-ROCHE-638221

PATIENT

DRUGS (10)
  1. MYCOPHENOLATE MOFETIL. [Suspect]
     Active Substance: MYCOPHENOLATE MOFETIL
     Dosage: DOSE ADJUSTED
     Route: 065
  2. BASILIXIMAB [Suspect]
     Active Substance: BASILIXIMAB
     Indication: PRODUCT USED FOR UNKNOWN INDICATION
     Route: 065
  3. MYCOPHENOLATE MOFETIL. [Suspect]
     Active Substance: MYCOPHENOLATE MOFETIL
     Route: 065
  4. UNSPECIFIED INGREDIENT [Suspect]
     Active Substance: UNSPECIFIED INGREDIENT
     Route: 065
  5. PREDNISONE. [Suspect]
     Active Substance: PREDNISONE
     Route: 065
  6. TACROLIMUS. [Suspect]
     Active Substance: TACROLIMUS
     Dosage: 8 TO 12 NG/ML
     Route: 065
  7. ACYCLOVIR. [Concomitant]
     Active Substance: ACYCLOVIR
  8. HUMAN IMMUNOGLOBULIN G [Suspect]
     Active Substance: HUMAN IMMUNOGLOBULIN G
     Indication: PRODUCT USED FOR UNKNOWN INDICATION
     Dosage: FORM INFUSION; DOSE 2 GRAM/KG
     Route: 042
  9. RITUXIMAB. [Suspect]
     Active Substance: RITUXIMAB
     Indication: PRODUCT USED FOR UNKNOWN INDICATION
     Route: 065
  10. SULFAMETHOXAZOLE\TRIMETHOPRIM [Suspect]
     Active Substance: SULFAMETHOXAZOLE\TRIMETHOPRIM
     Indication: INFECTION PROPHYLAXIS
     Route: 065

REACTIONS (18)
  - Endocarditis [Fatal]
  - Gastrointestinal haemorrhage [Unknown]
  - Intestinal perforation [Unknown]
  - Abdominal compartment syndrome [Unknown]
  - Haemorrhage [Unknown]
  - Haematoma [Unknown]
  - Polyomavirus-associated nephropathy [Unknown]
  - Thrombotic microangiopathy [Unknown]
  - Graft complication [Unknown]
  - Sepsis syndrome [Fatal]
  - Colitis [Unknown]
  - Pyelonephritis acute [Unknown]
  - Transplant rejection [Unknown]
  - Malignant hypertension [Unknown]
  - Hypotension [Unknown]
  - Haemolytic uraemic syndrome [Unknown]
  - BK virus infection [Unknown]
  - Cytomegalovirus infection [Unknown]
